FAERS Safety Report 6794066-1 (Version None)
Quarter: 2010Q2

REPORT INFORMATION
  Report Type: 
  Country: None (occurrence: None)
  Receive Date: 20100624
  Receipt Date: 20091014
  Transmission Date: 20101027
  Serious: No
  Sender: FDA-Public Use
  Company Number: US-PFIZER INC-2009283736

PATIENT
  Sex: Female
  Weight: 62.132 kg

DRUGS (1)
  1. RELPAX [Suspect]
     Indication: MIGRAINE
     Dosage: 40 MG, UNK
     Dates: start: 20090827, end: 20090827

REACTIONS (1)
  - RASH [None]
